FAERS Safety Report 6649525-9 (Version None)
Quarter: 2010Q1

REPORT INFORMATION
  Report Type: 
  Country: None (occurrence: None)
  Receive Date: 20100324
  Receipt Date: 20091222
  Transmission Date: 20100710
  Serious: Yes (Other)
  Sender: FDA-Public Use
  Company Number: US-AMGEN-US382073

PATIENT
  Sex: Female

DRUGS (3)
  1. NPLATE [Suspect]
     Indication: IDIOPATHIC THROMBOCYTOPENIC PURPURA
     Route: 058
     Dates: start: 20090206, end: 20090501
  2. CORTICOSTEROIDS [Concomitant]
     Route: 065
     Dates: start: 20080502
  3. IMMU-G [Concomitant]
     Route: 042

REACTIONS (1)
  - DRUG INEFFECTIVE [None]
